FAERS Safety Report 24881441 (Version 1)
Quarter: 2025Q1

REPORT INFORMATION
  Report Type: Spontaneous
  Country: US (occurrence: US)
  Receive Date: 20250124
  Receipt Date: 20250124
  Transmission Date: 20250409
  Serious: No
  Sender: AMGEN
  Company Number: US-AMGEN-USASP2025011408

PATIENT
  Sex: Female

DRUGS (1)
  1. TEPEZZA [Suspect]
     Active Substance: TEPROTUMUMAB-TRBW
     Indication: Endocrine ophthalmopathy
     Route: 065

REACTIONS (9)
  - Ear discomfort [Unknown]
  - Pain [Unknown]
  - Mood swings [Unknown]
  - Dry skin [Unknown]
  - Fatigue [Recovering/Resolving]
  - Muscle spasms [Unknown]
  - Tinnitus [Unknown]
  - Taste disorder [Unknown]
  - Menstruation irregular [Unknown]
